FAERS Safety Report 8332536-5 (Version None)
Quarter: 2012Q2

REPORT INFORMATION
  Report Type: 
  Country: None (occurrence: None)
  Receive Date: 20120503
  Receipt Date: 20120424
  Transmission Date: 20120825
  Serious: Yes (Hospitalization)
  Sender: FDA-Public Use
  Company Number: US-PFIZER INC-2012103827

PATIENT
  Age: 61 Year
  Sex: Male

DRUGS (6)
  1. LETAIRIS [Suspect]
     Indication: PULMONARY HYPERTENSION
     Dosage: 10 MG, UNK
     Dates: start: 20080421
  2. LETAIRIS [Suspect]
     Indication: SLEEP APNOEA SYNDROME
  3. LETAIRIS [Suspect]
     Indication: CARDIAC DISORDER
  4. PLAVIX [Concomitant]
     Dosage: UNK
  5. TYVASO [Suspect]
     Dosage: UNK
     Dates: start: 20100402
  6. REVATIO [Suspect]
     Dosage: UNK

REACTIONS (1)
  - DYSPNOEA [None]
